FAERS Safety Report 9605933 (Version 1)
Quarter: 2013Q4

REPORT INFORMATION
  Report Type: Spontaneous
  Country: US (occurrence: US)
  Receive Date: 20131008
  Receipt Date: 20131008
  Transmission Date: 20140711
  Serious: No
  Sender: FDA-Public Use
  Company Number: US-B.I. PHARMACEUTICALS,INC./RIDGEFIELD-2013-BI-30750BP

PATIENT
  Age: 71 Year
  Sex: Male
  Weight: 93 kg

DRUGS (2)
  1. COMBIVENT [Suspect]
     Indication: LUNG OPERATION
     Dosage: STRENGTH: 20 MCG / 100 MCG; DAILY DOSE: 80 MCG / 400
     Route: 055
     Dates: start: 201307
  2. PROAIR HFA [Concomitant]
     Indication: LUNG NEOPLASM MALIGNANT
     Dosage: FORMULATION : INHALATION SOLUTION
     Route: 055
     Dates: start: 2000

REACTIONS (2)
  - Rhinorrhoea [Not Recovered/Not Resolved]
  - Off label use [Not Recovered/Not Resolved]
